FAERS Safety Report 8310415-7 (Version None)
Quarter: 2012Q2

REPORT INFORMATION
  Report Type: 
  Country: None (occurrence: None)
  Receive Date: 20120425
  Receipt Date: 20120424
  Transmission Date: 20120825
  Serious: Yes (Hospitalization)
  Sender: FDA-Public Use
  Company Number: JP-BAYER-2011-093122

PATIENT
  Age: 72 Year
  Sex: Female
  Weight: 68 kg

DRUGS (15)
  1. KERATINAMIN [Concomitant]
     Dosage: UNK
     Route: 061
     Dates: start: 20110113
  2. ALDACTONE [Concomitant]
     Dosage: DAILY DOSE 25 MG
     Route: 048
     Dates: start: 20101028
  3. METFORMIN HCL [Concomitant]
     Dosage: DAILY DOSE 500 MG
     Route: 048
     Dates: start: 20060101
  4. PORTOLAC [Concomitant]
     Indication: HEPATIC ENCEPHALOPATHY PROPHYLAXIS
     Dosage: DAILY DOSE 18 G
     Route: 048
     Dates: start: 20110704
  5. SORAFENIB (RAF KINASE INHIBITOR) [Suspect]
     Dosage: DAILY DOSE 200 MG
     Route: 048
     Dates: start: 20110209, end: 20110213
  6. AMARYL [Concomitant]
     Dosage: DAILY DOSE 2 MG
     Route: 048
     Dates: start: 20060101
  7. NORVASC [Concomitant]
     Dosage: DAILY DOSE 2.5 MG
     Route: 048
  8. JANUVIA [Concomitant]
     Dosage: DAILY DOSE 50 MG
     Route: 048
     Dates: start: 20060101
  9. LASIX [Concomitant]
     Dosage: DAILY DOSE 40 MG
     Route: 048
     Dates: start: 20101028
  10. LENDORMIN [Concomitant]
     Dosage: DAILY DOSE .25 MG
     Route: 048
     Dates: start: 20091005
  11. SORAFENIB (RAF KINASE INHIBITOR) [Suspect]
     Dosage: UNK
     Dates: end: 20110603
  12. LANSOPRAZOLE [Concomitant]
     Dosage: DAILY DOSE 15 MG
     Route: 048
  13. LIVACT [Concomitant]
     Dosage: DAILY DOSE 12.45 G
     Route: 048
  14. SORAFENIB (RAF KINASE INHIBITOR) [Suspect]
     Dosage: UNK
     Dates: end: 20110626
  15. SORAFENIB (RAF KINASE INHIBITOR) [Suspect]
     Indication: HEPATIC NEOPLASM MALIGNANT
     Dosage: DAILY DOSE 400 MG
     Route: 048
     Dates: start: 20110120, end: 20110204

REACTIONS (8)
  - PAIN IN EXTREMITY [None]
  - NASOPHARYNGITIS [None]
  - NIPPLE SWELLING [None]
  - HAEMORRHAGE SUBCUTANEOUS [None]
  - TREMOR [None]
  - HEPATIC ENCEPHALOPATHY [None]
  - PALMAR-PLANTAR ERYTHRODYSAESTHESIA SYNDROME [None]
  - HYPERBILIRUBINAEMIA [None]
